FAERS Safety Report 9846865 (Version 1)
Quarter: 2014Q1

REPORT INFORMATION
  Report Type: Spontaneous
  Country: US (occurrence: US)
  Receive Date: 20140127
  Receipt Date: 20140127
  Transmission Date: 20141002
  Serious: Yes (Hospitalization, Other)
  Sender: FDA-Public Use
  Company Number: US-PFIZER INC-2014021862

PATIENT
  Age: 67 Year
  Sex: Female
  Weight: 96.6 kg

DRUGS (2)
  1. CELEBREX [Suspect]
     Indication: OSTEOARTHRITIS
     Dosage: 200 MG, 2X/DAY
     Dates: end: 201401
  2. CELEBREX [Suspect]
     Indication: PSORIATIC ARTHROPATHY

REACTIONS (4)
  - Off label use [Unknown]
  - Colitis [Unknown]
  - Colitis ischaemic [Unknown]
  - Weight decreased [Unknown]
